FAERS Safety Report 7527492-3 (Version None)
Quarter: 2011Q2

REPORT INFORMATION
  Report Type: 
  Country: None (occurrence: None)
  Receive Date: 20110607
  Receipt Date: 20110530
  Transmission Date: 20111010
  Serious: Yes (Other)
  Sender: FDA-Public Use
  Company Number: FR-JNJFOC-20110500759

PATIENT
  Sex: Female
  Weight: 85 kg

DRUGS (13)
  1. NICARDIPINE HCL [Concomitant]
     Indication: OEDEMA
     Route: 048
  2. TEMERIT [Concomitant]
     Indication: OEDEMA
     Route: 048
  3. TEMERIT [Concomitant]
     Indication: HYPERTENSION
     Route: 048
  4. PRAVASTATIN [Concomitant]
     Route: 048
  5. NORMACOL STANDARD [Concomitant]
     Indication: CONSTIPATION
     Route: 048
  6. LANTUS [Concomitant]
     Indication: DIABETES MELLITUS
     Route: 058
  7. TERCIAN [Concomitant]
     Indication: AGITATION
     Route: 048
  8. DIAMICRON [Concomitant]
     Indication: DIABETES MELLITUS
     Route: 048
     Dates: start: 20100503
  9. NICARDIPINE HCL [Concomitant]
     Indication: HYPERTENSION
     Route: 048
  10. NIZORAL [Suspect]
     Indication: PITUITARY TUMOUR
     Route: 048
     Dates: start: 20100801
  11. PLAVIX [Concomitant]
     Route: 048
  12. ALUMINUM HYDROXIDE AND MAGNESIUM TRISILICATE [Concomitant]
     Indication: DIARRHOEA
     Route: 048
  13. LOVENOX [Concomitant]
     Route: 058

REACTIONS (5)
  - FAECALOMA [None]
  - URINARY TRACT INFECTION [None]
  - URINARY RETENTION [None]
  - VAGINAL HAEMORRHAGE [None]
  - OFF LABEL USE [None]
